FAERS Safety Report 6112891-7 (Version None)
Quarter: 2009Q1

REPORT INFORMATION
  Report Type: 
  Country: None (occurrence: None)
  Receive Date: 20090312
  Receipt Date: 20090305
  Transmission Date: 20090719
  Serious: Yes (Other)
  Sender: FDA-Public Use
  Company Number: CA-BAYER-200910542NA

PATIENT
  Age: 43 Year
  Sex: Male
  Weight: 95 kg

DRUGS (2)
  1. AVELOX [Suspect]
     Indication: UPPER RESPIRATORY TRACT INFECTION
     Dosage: TOTAL DAILY DOSE: 400 MG  UNIT DOSE: 400 MG
     Route: 048
     Dates: start: 20080409, end: 20080418
  2. SYMBICORT [Concomitant]
     Route: 055

REACTIONS (2)
  - TONGUE DISCOLOURATION [None]
  - TOOTH DISCOLOURATION [None]
